FAERS Safety Report 10589329 (Version 2)
Quarter: 2014Q4

REPORT INFORMATION
  Report Type: Spontaneous
  Country: SE (occurrence: SE)
  Receive Date: 20141118
  Receipt Date: 20141118
  Transmission Date: 20150529
  Serious: Yes (Other)
  Sender: FDA-Public Use
  Company Number: SE-009507513-1411SWE003623

PATIENT
  Sex: Female

DRUGS (4)
  1. NOXAFIL [Suspect]
     Active Substance: POSACONAZOLE
     Dosage: 5 ML TWO TIMES A DAY (STRENGTH40MG/ML)
     Route: 048
     Dates: start: 20130121, end: 20141001
  2. CORTISONE [Concomitant]
     Active Substance: CORTISONE\HYDROCORTISONE
     Dosage: UNK
  3. NOXAFIL [Suspect]
     Active Substance: POSACONAZOLE
     Indication: ANTIFUNGAL PROPHYLAXIS
     Dosage: 5 ML THREE TIMES A DAY (STRENGTH40MG/ML)
     Route: 048
     Dates: start: 20111011, end: 20121218
  4. CYCLOSPORINE. [Concomitant]
     Active Substance: CYCLOSPORINE
     Dosage: UNK

REACTIONS (4)
  - Dehydration [Unknown]
  - Sepsis [Unknown]
  - Renal impairment [Unknown]
  - Incorrect drug administration duration [Unknown]
